FAERS Safety Report 15827864 (Version 1)
Quarter: 2019Q1

REPORT INFORMATION
  Report Type: Spontaneous
  Country: DE (occurrence: DE)
  Receive Date: 20190115
  Receipt Date: 20190115
  Transmission Date: 20190417
  Serious: Yes (Other)
  Sender: FDA-Public Use
  Company Number: DE-ALLERGAN-1901822US

PATIENT
  Age: 1 Day
  Sex: Male
  Weight: 2.58 kg

DRUGS (3)
  1. XANAFLU [Concomitant]
     Active Substance: INFLUENZA VIRUS VACCINE
     Indication: MATERNAL EXPOSURE TIMING UNSPECIFIED
     Dosage: UNK, SINGLE
     Route: 064
     Dates: start: 20171027, end: 20171027
  2. QUETIAPINE. [Suspect]
     Active Substance: QUETIAPINE
     Indication: MATERNAL EXPOSURE TIMING UNSPECIFIED
     Dosage: 200 MG, QD
     Route: 064
     Dates: start: 20170604, end: 20180307
  3. CITALOPRAM HYDROBROMIDE - BP [Suspect]
     Active Substance: CITALOPRAM HYDROBROMIDE
     Indication: MATERNAL EXPOSURE TIMING UNSPECIFIED
     Dosage: 20 MG, QD
     Route: 064
     Dates: start: 20170604, end: 20180307

REACTIONS (2)
  - Foetal exposure during pregnancy [Unknown]
  - Small for dates baby [Recovered/Resolved]

NARRATIVE: CASE EVENT DATE: 20180307
